FAERS Safety Report 8973383 (Version 4)
Quarter: 2013Q1

REPORT INFORMATION
  Report Type: Spontaneous
  Country: JP (occurrence: JP)
  Receive Date: 20121218
  Receipt Date: 20130124
  Transmission Date: 20140127
  Serious: Yes (Death, Hospitalization)
  Sender: FDA-Public Use
  Company Number: JP-B.I. PHARMACEUTICALS,INC./RIDGEFIELD-2012-BI-03190NB

PATIENT
  Age: 76 None
  Sex: Female
  Weight: 35 kg

DRUGS (10)
  1. PRADAXA [Suspect]
     Indication: ATRIAL FIBRILLATION
     Dosage: 220 MG
     Route: 048
     Dates: start: 20110602, end: 20121124
  2. WARFARIN [Suspect]
     Indication: ATRIAL FIBRILLATION
     Dosage: 2 MG
     Route: 048
     Dates: start: 201202
  3. PIROAN [Suspect]
     Dosage: 300 MG
     Route: 048
     Dates: end: 20121124
  4. TAKEPRON [Concomitant]
     Route: 065
     Dates: end: 20121124
  5. EXFORGE [Concomitant]
     Route: 048
     Dates: end: 20121124
  6. DIGOXIN [Concomitant]
     Dosage: 0.5 MG
     Route: 048
     Dates: end: 20121124
  7. NEUQUINON [Concomitant]
     Dosage: 30 MG
     Route: 065
     Dates: end: 20121124
  8. DELUX-C [Concomitant]
     Dosage: 1 G
     Route: 048
     Dates: end: 20121124
  9. FERRUM [Concomitant]
     Route: 048
     Dates: end: 20121124
  10. SORNILART [Concomitant]
     Dosage: 300 MG
     Route: 048
     Dates: end: 20121124

REACTIONS (3)
  - Thalamus haemorrhage [Fatal]
  - International normalised ratio increased [Unknown]
  - Creatinine renal clearance decreased [Unknown]
